FAERS Safety Report 22944959 (Version 11)
Quarter: 2024Q2

REPORT INFORMATION
  Report Type: Spontaneous
  Country: US (occurrence: US)
  Receive Date: 20230914
  Receipt Date: 20240618
  Transmission Date: 20240715
  Serious: No
  Sender: FDA-Public Use
  Company Number: US-PFIZER INC-PV202300150624

PATIENT
  Age: 69 Year
  Sex: Female
  Weight: 85.261 kg

DRUGS (6)
  1. IBRANCE [Suspect]
     Active Substance: PALBOCICLIB
     Indication: Breast cancer female
     Dosage: 125 MG, ALTERNATE DAY
     Route: 048
     Dates: start: 20230831
  2. IBRANCE [Suspect]
     Active Substance: PALBOCICLIB
     Dosage: 100 MG, CYCLIC (1 TABLET EVERY OTHER DAY, FOR 21 DAYS OUT OF 28)
     Route: 048
  3. IBRANCE [Suspect]
     Active Substance: PALBOCICLIB
     Dosage: 125 MG (TOOK ONLY 1 TABLET)
     Route: 048
     Dates: start: 20230907, end: 20230908
  4. IBRANCE [Suspect]
     Active Substance: PALBOCICLIB
     Dosage: 100 MG, ALTERNATE DAY (1 TABLET EVERY OTHER DAY, FOR 21 DAYS OUT OF 28)
     Route: 048
     Dates: start: 202403
  5. IBRANCE [Suspect]
     Active Substance: PALBOCICLIB
     Dosage: 100 MG, DAILY (EVERY DAY)
  6. FULVESTRANT [Concomitant]
     Active Substance: FULVESTRANT
     Indication: Breast cancer female
     Dosage: UNK

REACTIONS (4)
  - Full blood count decreased [Unknown]
  - Neoplasm progression [Unknown]
  - Off label use [Unknown]
  - Product prescribing error [Unknown]

NARRATIVE: CASE EVENT DATE: 20230831
